FAERS Safety Report 7945802-X (Version None)
Quarter: 2011Q4

REPORT INFORMATION
  Report Type: 
  Country: None (occurrence: None)
  Receive Date: 20111129
  Receipt Date: 20111122
  Transmission Date: 20120403
  Serious: Yes (Other)
  Sender: FDA-Public Use
  Company Number: DE-ROCHE-1008822

PATIENT
  Sex: Female
  Weight: 53 kg

DRUGS (4)
  1. HERCEPTIN [Suspect]
     Dates: start: 20111102
  2. ACETAMINOPHEN [Concomitant]
     Indication: BREAST CANCER
     Route: 048
     Dates: start: 20110921
  3. L-THYROX [Concomitant]
  4. HERCEPTIN [Suspect]
     Indication: BREAST CANCER
     Route: 042
     Dates: start: 20110921

REACTIONS (1)
  - PERICARDIAL EFFUSION [None]
